FAERS Safety Report 8504340-6 (Version None)
Quarter: 2012Q3

REPORT INFORMATION
  Report Type: 
  Country: None (occurrence: None)
  Receive Date: 20120711
  Receipt Date: 20120710
  Transmission Date: 20120928
  Serious: Yes (Hospitalization)
  Sender: FDA-Public Use
  Company Number: PHHO2011BE15413

PATIENT
  Sex: Female
  Weight: 56 kg

DRUGS (12)
  1. AFINITOR [Suspect]
     Indication: BREAST CANCER METASTATIC
     Dosage: CODE NOT BROKEN
     Dates: start: 20110701, end: 20110721
  2. BLINDED NO TREATMENT RECEIVED [Suspect]
     Dosage: CODE NOT BROKEN
     Dates: start: 20110805, end: 20110906
  3. PLACEBO [Suspect]
     Dosage: NO TREATMENT
     Dates: start: 20110722, end: 20110804
  4. BLINDED NO TREATMENT RECEIVED [Suspect]
     Dosage: NO TREATMENT
     Dates: start: 20110722, end: 20110804
  5. PRAVASTATIN [Suspect]
  6. COMPARATOR TRASTUZUMAB [Suspect]
     Indication: BREAST CANCER METASTATIC
     Dosage: 2 MG/KG, UNK
  7. BLINDED NO TREATMENT RECEIVED [Suspect]
     Indication: BREAST CANCER METASTATIC
     Dosage: CODE NOT BROKEN
     Dates: start: 20110701, end: 20110721
  8. AFINITOR [Suspect]
     Dosage: NO TREATMENT
     Dates: start: 20110722, end: 20110804
  9. PLACEBO [Suspect]
     Indication: BREAST CANCER METASTATIC
     Dosage: CODE NOT BROKEN
     Dates: start: 20110701, end: 20110721
  10. PLACEBO [Suspect]
     Dosage: CODE NOT BROKEN
     Dates: start: 20110805, end: 20110906
  11. AFINITOR [Suspect]
     Dosage: CODE NOT BROKEN
     Dates: start: 20110805, end: 20110906
  12. VINORELBINE [Suspect]
     Indication: BREAST CANCER METASTATIC
     Dosage: 2.5 MG/M2, UNK
     Dates: start: 20110701

REACTIONS (1)
  - CYTOLYTIC HEPATITIS [None]
